FAERS Safety Report 5786185-3 (Version None)
Quarter: 2008Q2

REPORT INFORMATION
  Report Type: 
  Country: None (occurrence: None)
  Receive Date: 20080624
  Receipt Date: 20080623
  Transmission Date: 20081010
  Serious: Yes (Death)
  Sender: FDA-Public Use
  Company Number: B0506356A

PATIENT
  Age: 52 Year
  Sex: Female
  Weight: 41 kg

DRUGS (8)
  1. FLOLAN [Suspect]
     Indication: PULMONARY HYPERTENSION
     Route: 042
     Dates: start: 20070114, end: 20070114
  2. FLOLAN [Suspect]
     Route: 042
     Dates: start: 20070115, end: 20070115
  3. FLOLAN [Suspect]
     Route: 042
     Dates: start: 20070116, end: 20070116
  4. FUROSEMIDE [Concomitant]
     Route: 048
  5. NU-LOTAN [Concomitant]
     Route: 048
  6. BAKTAR [Concomitant]
     Route: 048
  7. TRACLEER [Concomitant]
     Route: 048
  8. IMURAN [Concomitant]

REACTIONS (1)
  - CARDIAC FAILURE [None]
